FAERS Safety Report 5239285-0 (Version None)
Quarter: 2007Q1

REPORT INFORMATION
  Report Type: 
  Country: None (occurrence: None)
  Receive Date: 20070216
  Receipt Date: 20070205
  Transmission Date: 20070707
  Serious: Yes (Hospitalization)
  Sender: FDA-Public Use
  Company Number: FR-NOVOPROD-249771

PATIENT
  Age: 52 Year
  Sex: Female
  Weight: 115 kg

DRUGS (12)
  1. NOVONORM [Suspect]
     Indication: DIABETES MELLITUS NON-INSULIN-DEPENDENT
     Dosage: 1 MG, QD
     Route: 048
     Dates: start: 20030101, end: 20051211
  2. IMOVANE [Concomitant]
     Dosage: 7.5 MG, UNK
  3. AUGMENTIN [Concomitant]
     Dosage: 3 TAB, TID
     Route: 048
     Dates: start: 20051001, end: 20051029
  4. OFLOCET [Concomitant]
     Dosage: 2 UNK, BID
     Route: 048
     Dates: start: 20051019, end: 20051027
  5. LEVOTHYROXINE SODIUM [Concomitant]
     Dosage: 75 UG, QD
     Dates: start: 19960101
  6. SERETIDE ^ALLEN + HANBURYS LTD^ [Concomitant]
     Dosage: UNK, BID
  7. RISORDAN [Concomitant]
  8. HEPARIN [Concomitant]
  9. LASIX [Concomitant]
  10. DOLIPRANE [Concomitant]
     Dates: start: 20051030, end: 20051103
  11. PERFALGAN [Concomitant]
     Route: 042
     Dates: start: 20051029, end: 20051030
  12. PERFALGAN [Concomitant]
     Route: 042
     Dates: start: 20051030, end: 20051030

REACTIONS (2)
  - ACUTE GENERALISED EXANTHEMATOUS PUSTULOSIS [None]
  - ACUTE RESPIRATORY FAILURE [None]
